FAERS Safety Report 17900475 (Version 1)
Quarter: 2020Q2

REPORT INFORMATION
  Report Type: Spontaneous
  Country: US (occurrence: US)
  Receive Date: 20200616
  Receipt Date: 20200616
  Transmission Date: 20200714
  Serious: Yes (Hospitalization)
  Sender: FDA-Public Use
  Company Number: None

PATIENT
  Age: 40 Year
  Sex: Female
  Weight: 66 kg

DRUGS (1)
  1. KETOROLAC [Suspect]
     Active Substance: KETOROLAC TROMETHAMINE
     Indication: PAIN
     Dates: start: 20200608, end: 20200610

REACTIONS (3)
  - Acute kidney injury [None]
  - Blood creatinine increased [None]
  - Post procedural hypotension [None]

NARRATIVE: CASE EVENT DATE: 20200610
